FAERS Safety Report 11720586 (Version 2)
Quarter: 2016Q1

REPORT INFORMATION
  Report Type: Report from Study
  Country: US (occurrence: US)
  Receive Date: 20151110
  Receipt Date: 20160112
  Transmission Date: 20160525
  Serious: Yes (Death, Other)
  Sender: FDA-Public Use
  Company Number: US-GILEAD-2015-0176286

PATIENT
  Age: 60 Year
  Sex: Male

DRUGS (21)
  1. AMBRISENTAN [Suspect]
     Active Substance: AMBRISENTAN
     Indication: HEPATIC CIRRHOSIS
  2. AMBRISENTAN [Suspect]
     Active Substance: AMBRISENTAN
     Indication: CARDIAC CIRRHOSIS
  3. RESVERATROL [Concomitant]
     Active Substance: RESVERATROL
  4. OMEGA 3                            /01333901/ [Concomitant]
     Active Substance: FISH OIL\TOCOPHEROL
  5. COUMADIN [Concomitant]
     Active Substance: WARFARIN SODIUM
  6. CO Q 10                            /00517201/ [Concomitant]
  7. SPIRIVA [Concomitant]
     Active Substance: TIOTROPIUM BROMIDE MONOHYDRATE
  8. ZOLPIDEM TARTRATE. [Concomitant]
     Active Substance: ZOLPIDEM TARTRATE
  9. ROPINIROLE. [Concomitant]
     Active Substance: ROPINIROLE
  10. BUSPIRONE HCL [Concomitant]
     Active Substance: BUSPIRONE HYDROCHLORIDE
  11. AMBRISENTAN [Suspect]
     Active Substance: AMBRISENTAN
     Indication: PULMONARY ARTERIAL HYPERTENSION
     Dosage: 5 MG, QD
     Route: 065
     Dates: start: 20150913, end: 20150927
  12. LASIX [Concomitant]
     Active Substance: FUROSEMIDE
  13. HYDROCODONE BITARTRATE. [Concomitant]
     Active Substance: HYDROCODONE BITARTRATE
  14. CARVEDILOL. [Concomitant]
     Active Substance: CARVEDILOL
  15. FAMOTIDINE. [Concomitant]
     Active Substance: FAMOTIDINE
  16. SPIRONOLACTONE. [Concomitant]
     Active Substance: SPIRONOLACTONE
  17. HAWTHORN                           /01349301/ [Concomitant]
     Active Substance: HAWTHORN LEAF WITH FLOWER
  18. SIMVASTATIN. [Concomitant]
     Active Substance: SIMVASTATIN
  19. AMBRISENTAN [Suspect]
     Active Substance: AMBRISENTAN
     Indication: HEPATOBILIARY DISEASE
  20. TYVASO [Suspect]
     Active Substance: TREPROSTINIL
     Indication: PULMONARY ARTERIAL HYPERTENSION
     Dosage: 54 MICROGRAMS (9 BREATHS) QID
     Route: 055
     Dates: start: 20150630
  21. ADCIRCA [Suspect]
     Active Substance: TADALAFIL
     Indication: PRODUCT USED FOR UNKNOWN INDICATION
     Route: 065

REACTIONS (8)
  - Pulmonary hypertension [Fatal]
  - Ascites [Unknown]
  - Dizziness [Unknown]
  - Flushing [Recovered/Resolved]
  - Drug intolerance [Recovered/Resolved]
  - Dyspnoea [Recovered/Resolved]
  - Nausea [Recovered/Resolved]
  - Ventricular fibrillation [Fatal]

NARRATIVE: CASE EVENT DATE: 2015
